FAERS Safety Report 20768854 (Version 1)
Quarter: 2022Q2

REPORT INFORMATION
  Report Type: Spontaneous
  Country: US (occurrence: None)
  Receive Date: 20220428
  Receipt Date: 20220428
  Transmission Date: 20220721
  Serious: Yes (Other)
  Sender: FDA-Public Use
  Company Number: None

PATIENT
  Age: 80 Year
  Sex: Female

DRUGS (1)
  1. SUNITINIB [Suspect]
     Active Substance: SUNITINIB
     Dosage: FREQUENCY: DAILY?
     Route: 048
     Dates: start: 202201

REACTIONS (8)
  - Speech disorder [None]
  - Eye ulcer [None]
  - Unevaluable event [None]
  - Blood potassium decreased [None]
  - Blood magnesium decreased [None]
  - Diarrhoea [None]
  - Fatigue [None]
  - Mouth ulceration [None]

NARRATIVE: CASE EVENT DATE: 20220428
